FAERS Safety Report 6076615-4 (Version None)
Quarter: 2009Q1

REPORT INFORMATION
  Report Type: 
  Country: None (occurrence: None)
  Receive Date: 20090213
  Receipt Date: 20081216
  Transmission Date: 20090719
  Serious: Yes (Death)
  Sender: FDA-Public Use
  Company Number: US-BRISTOL-MYERS SQUIBB COMPANY-14417034

PATIENT
  Age: 33 Year
  Sex: Female

DRUGS (10)
  1. IXEMPRA KIT [Suspect]
     Indication: BREAST CANCER METASTATIC
     Route: 042
     Dates: start: 20080326, end: 20080804
  2. XELODA [Suspect]
     Indication: BREAST CANCER METASTATIC
     Dates: start: 20080326, end: 20080528
  3. EMEND [Concomitant]
  4. ANZEMET [Concomitant]
  5. DECADRON [Concomitant]
     Indication: PREMEDICATION
  6. PHENERGAN [Concomitant]
  7. PERCOCET [Concomitant]
  8. COMBIVENT [Concomitant]
  9. NEXIUM [Concomitant]
  10. DIPHENHYDRAMINE HCL [Concomitant]
     Indication: PREMEDICATION

REACTIONS (3)
  - MALIGNANT NEOPLASM PROGRESSION [None]
  - NEUROPATHY PERIPHERAL [None]
  - PERONEAL NERVE PALSY [None]
